FAERS Safety Report 17197583 (Version 1)
Quarter: 2019Q4

REPORT INFORMATION
  Report Type: Spontaneous
  Country: US (occurrence: US)
  Receive Date: 20191224
  Receipt Date: 20191224
  Transmission Date: 20200122
  Serious: No
  Sender: FDA-Public Use
  Company Number: US-TEVA-2019-US-1155928

PATIENT
  Age: 69 Year
  Sex: Male

DRUGS (3)
  1. SIMVASTATIN/EZETIMIBE [Concomitant]
     Active Substance: SIMVASTATIN
  2. LISINOPRIL. [Suspect]
     Active Substance: LISINOPRIL
     Indication: BLOOD PRESSURE MEASUREMENT
     Route: 065
  3. METOPROLOL. [Suspect]
     Active Substance: METOPROLOL
     Route: 065

REACTIONS (3)
  - Feeling abnormal [Unknown]
  - Head discomfort [Unknown]
  - Blood pressure increased [Unknown]
